FAERS Safety Report 4816889-8 (Version None)
Quarter: 2005Q4

REPORT INFORMATION
  Report Type: 
  Country: None (occurrence: None)
  Receive Date: 20051031
  Receipt Date: 20051031
  Transmission Date: 20060501
  Serious: Yes (Hospitalization)
  Sender: FDA-Public Use
  Company Number: None

PATIENT
  Age: 67 Year
  Sex: Male

DRUGS (2)
  1. CISPLATIN [Suspect]
     Indication: NEOPLASM
     Dosage: 125 MG [X1]
     Dates: start: 20050815
  2. ETOPOSIDE [Suspect]
     Indication: NEOPLASM
     Dosage: 210 MG QD [X3]

REACTIONS (1)
  - NEUTROPENIA [None]
